FAERS Safety Report 5546995-4 (Version None)
Quarter: 2007Q4

REPORT INFORMATION
  Report Type: 
  Country: None (occurrence: None)
  Receive Date: 20071211
  Receipt Date: 20070217
  Transmission Date: 20080405
  Serious: No
  Sender: FDA-Public Use
  Company Number: US-AMGEN-KDL211738

PATIENT
  Sex: Female

DRUGS (1)
  1. ENBREL [Suspect]
     Indication: RHEUMATOID ARTHRITIS
     Route: 058
     Dates: start: 20061229

REACTIONS (10)
  - ASTHENIA [None]
  - BACK PAIN [None]
  - BURNING SENSATION [None]
  - DEHYDRATION [None]
  - DISCOMFORT [None]
  - INJECTION SITE ERYTHEMA [None]
  - IODINE UPTAKE DECREASED [None]
  - PAIN [None]
  - PAIN IN EXTREMITY [None]
  - RHEUMATOID NODULE [None]
